FAERS Safety Report 4864103-X (Version None)
Quarter: 2005Q4

REPORT INFORMATION
  Report Type: 
  Country: None (occurrence: None)
  Receive Date: 20051222
  Receipt Date: 20051219
  Transmission Date: 20060501
  Serious: Yes (Death)
  Sender: FDA-Public Use
  Company Number: 13218474

PATIENT
  Age: 84 Year
  Sex: Male

DRUGS (5)
  1. AVANDIA [Suspect]
     Indication: DRUG USE FOR UNKNOWN INDICATION
     Dosage: 2MG TWICE PER DAY
     Route: 048
  2. ACARBOSE [Suspect]
     Indication: DRUG USE FOR UNKNOWN INDICATION
     Dosage: 100MG TWICE PER DAY
     Route: 048
  3. DIABETA [Suspect]
     Indication: DRUG USE FOR UNKNOWN INDICATION
     Dosage: 10MG TWICE PER DAY
     Route: 048
  4. TEQUIN [Suspect]
     Indication: DRUG USE FOR UNKNOWN INDICATION
     Dosage: 400MG PER DAY
     Route: 042
  5. CEFTIN [Concomitant]

REACTIONS (2)
  - CONVULSION [None]
  - HYPOGLYCAEMIA [None]
